FAERS Safety Report 10235089 (Version 2)
Quarter: 2014Q2

REPORT INFORMATION
  Report Type: Spontaneous
  Country: JP (occurrence: JP)
  Receive Date: 20140613
  Receipt Date: 20140620
  Transmission Date: 20141212
  Serious: Yes (Death)
  Sender: FDA-Public Use
  Company Number: JP-SA-2014SA075177

PATIENT
  Age: 74 Year
  Sex: Male

DRUGS (2)
  1. BCG FOR IMMUNOTHERAPY [Suspect]
     Indication: BLADDER CANCER
     Route: 065
  2. BCG (CONNAUGHT) IT [Suspect]
     Indication: BLADDER CANCER
     Route: 065

REACTIONS (7)
  - Lymph node tuberculosis [Fatal]
  - Pyrexia [Fatal]
  - Pleural effusion [Fatal]
  - Pericardial effusion [Fatal]
  - Aortic rupture [Fatal]
  - Lymph node abscess [Fatal]
  - Haemoptysis [Fatal]
